FAERS Safety Report 17283543 (Version 6)
Quarter: 2020Q1

REPORT INFORMATION
  Report Type: Spontaneous
  Country: US (occurrence: US)
  Receive Date: 20200117
  Receipt Date: 20200225
  Transmission Date: 20200409
  Serious: Yes (Hospitalization, Other)
  Sender: FDA-Public Use
  Company Number: US-ALKERMES INC.-ALK-2019-003887

PATIENT
  Age: 32 Year
  Sex: Female
  Weight: 63.49 kg

DRUGS (7)
  1. VIVITROL [Suspect]
     Active Substance: NALTREXONE
     Indication: ALCOHOLISM
     Dosage: 380 MG, QMO
     Route: 030
     Dates: start: 20200203
  2. VIVITROL [Suspect]
     Active Substance: NALTREXONE
     Dosage: 380 MG, QMO
     Route: 030
     Dates: start: 20190723, end: 20190723
  3. OTHER THERAPEUTIC PRODUCTS [Concomitant]
     Active Substance: UNSPECIFIED INGREDIENT
     Indication: CYSTIC FIBROSIS
     Dosage: UNK
  4. VIVITROL [Suspect]
     Active Substance: NALTREXONE
     Dosage: 380 MG, QMO
     Route: 030
     Dates: start: 20190618, end: 20190618
  5. VIVITROL [Suspect]
     Active Substance: NALTREXONE
     Dosage: 380 MG, QMO
     Route: 030
     Dates: start: 20190820, end: 20190820
  6. OTHER THERAPEUTIC PRODUCTS [Concomitant]
     Active Substance: UNSPECIFIED INGREDIENT
     Indication: LUNG DISORDER
     Dosage: UNK
  7. VIVITROL [Suspect]
     Active Substance: NALTREXONE
     Dosage: 380 MG, QMO
     Route: 030
     Dates: start: 20191216, end: 20191216

REACTIONS (14)
  - Injection site induration [Recovered/Resolved]
  - Influenza like illness [Recovered/Resolved]
  - Incorrect route of product administration [Recovered/Resolved]
  - Injection site pain [Unknown]
  - Intestinal obstruction [Recovered/Resolved]
  - Cystic fibrosis [Recovered/Resolved]
  - Lung disorder [Recovered/Resolved]
  - Upper respiratory tract infection [Not Recovered/Not Resolved]
  - Wrong technique in product usage process [Recovered/Resolved]
  - Injection site reaction [Unknown]
  - Alcohol use [Recovered/Resolved]
  - Injection site abscess [Unknown]
  - Inappropriate schedule of product administration [Recovered/Resolved]
  - Dermatitis contact [Recovered/Resolved]

NARRATIVE: CASE EVENT DATE: 2019
